FAERS Safety Report 5105147-2 (Version None)
Quarter: 2006Q3

REPORT INFORMATION
  Report Type: 
  Country: None (occurrence: None)
  Receive Date: 20060914
  Receipt Date: 20060908
  Transmission Date: 20061208
  Serious: Yes (Hospitalization)
  Sender: FDA-Public Use
  Company Number: NO-MERCK-0609NOR00004

PATIENT
  Age: 51 Year
  Sex: Female

DRUGS (6)
  1. SINGULAIR [Suspect]
     Indication: ASTHMA
     Route: 048
     Dates: start: 20060201, end: 20060712
  2. FLUTICASONE PROPIONATE [Concomitant]
     Route: 055
  3. BUDESONIDE AND FORMOTEROL FUMARATE [Concomitant]
     Route: 055
  4. DESLORATADINE [Concomitant]
     Route: 048
  5. FUROSEMIDE [Concomitant]
     Route: 048
     Dates: start: 20060708
  6. DICLOXACILLIN SODIUM [Concomitant]
     Route: 048
     Dates: start: 20060708

REACTIONS (1)
  - ALLERGIC GRANULOMATOUS ANGIITIS [None]
